FAERS Safety Report 15003353 (Version 1)
Quarter: 2018Q2

REPORT INFORMATION
  Report Type: Other
  Country: DE (occurrence: DE)
  Receive Date: 20180613
  Receipt Date: 20180613
  Transmission Date: 20180711
  Serious: Yes (Hospitalization, Other)
  Sender: FDA-Public Use
  Company Number: DE-MACLEODS PHARMACEUTICALS US LTD-MAC2018014254

PATIENT

DRUGS (6)
  1. SEROQUEL [Suspect]
     Active Substance: QUETIAPINE FUMARATE
     Indication: PRODUCT USED FOR UNKNOWN INDICATION
     Dosage: 50 MILLIGRAM
     Route: 048
     Dates: start: 20161228, end: 20161230
  2. ARIPIPRAZOLE 5MG TABLET [Suspect]
     Active Substance: ARIPIPRAZOLE
     Indication: PRODUCT USED FOR UNKNOWN INDICATION
     Dosage: 5 MILLIGRAM, QD
     Route: 048
  3. QUILONUM RETARD [Suspect]
     Active Substance: LITHIUM CARBONATE
     Indication: PRODUCT USED FOR UNKNOWN INDICATION
     Dosage: 1125 MILLIGRAM, QD
     Route: 048
  4. SEROQUEL [Suspect]
     Active Substance: QUETIAPINE FUMARATE
     Dosage: 200 MILLIGRAM, QD
     Route: 048
     Dates: start: 20170104
  5. CIATYL-Z ACUPHASE [Suspect]
     Active Substance: ZUCLOPENTHIXOL ACETATE
     Indication: PRODUCT USED FOR UNKNOWN INDICATION
     Dosage: 150 MILLIGRAM, QD
     Route: 030
     Dates: start: 20170107
  6. SEROQUEL [Suspect]
     Active Substance: QUETIAPINE FUMARATE
     Dosage: 100 MILLIGRAM, QD
     Route: 048
     Dates: start: 20161231, end: 20170103

REACTIONS (13)
  - Feeding disorder [Unknown]
  - Movement disorder [Unknown]
  - Aphasia [Unknown]
  - Akathisia [Unknown]
  - Restlessness [Unknown]
  - Dysgraphia [Unknown]
  - Chills [Unknown]
  - Hypokinesia [Unknown]
  - Underdose [Unknown]
  - Extrapyramidal disorder [Unknown]
  - Parkinson^s disease [Unknown]
  - Dyskinesia [Recovered/Resolved]
  - Compulsions [Unknown]

NARRATIVE: CASE EVENT DATE: 20170112
